FAERS Safety Report 19237738 (Version 2)
Quarter: 2022Q3

REPORT INFORMATION
  Report Type: Spontaneous
  Country: US (occurrence: US)
  Receive Date: 20210510
  Receipt Date: 20220830
  Transmission Date: 20221027
  Serious: No
  Sender: FDA-Public Use
  Company Number: US-GSKCCFUS-CASE-01048693_AE-62161

PATIENT
  Sex: Female

DRUGS (3)
  1. BREO ELLIPTA [Suspect]
     Active Substance: FLUTICASONE FUROATE\VILANTEROL TRIFENATATE
     Indication: Product used for unknown indication
     Dosage: UNK, UNK, QD, 100/25 MCG, FOR SOME TIME
     Route: 055
  2. FLUTICASONE [Concomitant]
     Active Substance: FLUTICASONE
     Indication: Product used for unknown indication
     Dosage: UNK
  3. AZELASTINE [Concomitant]
     Active Substance: AZELASTINE
     Indication: Product used for unknown indication
     Dosage: UNK

REACTIONS (9)
  - Cough [Unknown]
  - Productive cough [Unknown]
  - Wheezing [Unknown]
  - Muscle spasms [Unknown]
  - Trismus [Unknown]
  - Abdominal pain upper [Unknown]
  - Muscular weakness [Recovered/Resolved]
  - Total lung capacity abnormal [Unknown]
  - Drug ineffective [Unknown]
